FAERS Safety Report 22064454 (Version 2)
Quarter: 2024Q1

REPORT INFORMATION
  Report Type: Spontaneous
  Country: US (occurrence: US)
  Receive Date: 20230306
  Receipt Date: 20240221
  Transmission Date: 20240410
  Serious: No
  Sender: FDA-Public Use
  Company Number: US-ELI_LILLY_AND_COMPANY-US202303001823

PATIENT
  Age: 42 Year
  Sex: Female

DRUGS (15)
  1. MOUNJARO [Suspect]
     Active Substance: TIRZEPATIDE
     Indication: Glycosylated haemoglobin increased
     Dosage: 7.5 MG, UNKNOWN
     Route: 065
  2. MOUNJARO [Suspect]
     Active Substance: TIRZEPATIDE
     Indication: Glycosylated haemoglobin increased
     Dosage: 7.5 MG, UNKNOWN
     Route: 065
  3. MOUNJARO [Suspect]
     Active Substance: TIRZEPATIDE
     Indication: Glycosylated haemoglobin increased
     Dosage: 7.5 MG, UNKNOWN
     Route: 065
  4. MOUNJARO [Suspect]
     Active Substance: TIRZEPATIDE
     Indication: Glycosylated haemoglobin increased
     Dosage: 7.5 MG, UNKNOWN
     Route: 065
  5. MOUNJARO [Suspect]
     Active Substance: TIRZEPATIDE
     Indication: Glycosylated haemoglobin increased
     Dosage: 7.5 MG, UNKNOWN
     Route: 065
  6. MOUNJARO [Suspect]
     Active Substance: TIRZEPATIDE
     Indication: Migraine
  7. MOUNJARO [Suspect]
     Active Substance: TIRZEPATIDE
     Indication: Migraine
  8. MOUNJARO [Suspect]
     Active Substance: TIRZEPATIDE
     Indication: Migraine
  9. MOUNJARO [Suspect]
     Active Substance: TIRZEPATIDE
     Indication: Migraine
  10. MOUNJARO [Suspect]
     Active Substance: TIRZEPATIDE
     Indication: Migraine
  11. MOUNJARO [Suspect]
     Active Substance: TIRZEPATIDE
     Indication: Headache
  12. MOUNJARO [Suspect]
     Active Substance: TIRZEPATIDE
     Indication: Headache
  13. MOUNJARO [Suspect]
     Active Substance: TIRZEPATIDE
     Indication: Headache
  14. MOUNJARO [Suspect]
     Active Substance: TIRZEPATIDE
     Indication: Headache
  15. MOUNJARO [Suspect]
     Active Substance: TIRZEPATIDE
     Indication: Headache

REACTIONS (5)
  - Off label use [Unknown]
  - Decreased appetite [Unknown]
  - Nausea [Unknown]
  - Eructation [Unknown]
  - Abdominal discomfort [Unknown]
